FAERS Safety Report 5730676-8 (Version None)
Quarter: 2008Q2

REPORT INFORMATION
  Report Type: 
  Country: None (occurrence: None)
  Receive Date: 20080505
  Receipt Date: 20080505
  Transmission Date: 20081010
  Serious: Yes (Hospitalization)
  Sender: FDA-Public Use
  Company Number: None

PATIENT
  Age: 38 Year
  Sex: Female
  Weight: 80.2867 kg

DRUGS (2)
  1. SINGULAIR [Suspect]
     Indication: SEASONAL ALLERGY
     Dosage: ONE PILL AT NIGHT
     Dates: start: 20060501, end: 20060512
  2. SINGULAIR [Suspect]
     Indication: SEASONAL ALLERGY
     Dosage: ONE PILL AT NIGHT
     Dates: start: 20070601, end: 20071223

REACTIONS (6)
  - DYSPNOEA [None]
  - EPILEPSY [None]
  - GRAND MAL CONVULSION [None]
  - ILL-DEFINED DISORDER [None]
  - SINUSITIS [None]
  - TREMOR [None]
